FAERS Safety Report 5383338-3 (Version None)
Quarter: 2007Q3

REPORT INFORMATION
  Report Type: 
  Country: None (occurrence: None)
  Receive Date: 20070710
  Receipt Date: 20070628
  Transmission Date: 20080115
  Serious: Yes (Other)
  Sender: FDA-Public Use
  Company Number: US-PFIZER INC-2007054138

PATIENT
  Age: 65 Year
  Sex: Male

DRUGS (2)
  1. PHENYTOIN INJECTION [Suspect]
     Indication: GRAND MAL CONVULSION
  2. LORAZEPAM [Concomitant]

REACTIONS (1)
  - PURPLE GLOVE SYNDROME [None]
